FAERS Safety Report 9495206 (Version 1)
Quarter: 2013Q3

REPORT INFORMATION
  Report Type: Spontaneous
  Country: JP (occurrence: JP)
  Receive Date: 20130903
  Receipt Date: 20130903
  Transmission Date: 20140515
  Serious: Yes (Hospitalization)
  Sender: FDA-Public Use
  Company Number: JP-UCBSA-096453

PATIENT
  Age: 72 Year
  Sex: Male

DRUGS (4)
  1. XYZAL [Suspect]
     Indication: DERMATITIS ATOPIC
     Route: 048
     Dates: start: 201305, end: 20130719
  2. FAMVIR [Concomitant]
     Indication: HERPES ZOSTER
     Dosage: UNKNOWN DOSE
     Dates: start: 20130718, end: 20130719
  3. LOXONIN [Concomitant]
     Indication: HERPES ZOSTER
     Dosage: UNKNOWN DOSE
     Dates: start: 20130718, end: 20130719
  4. METHYCOBAL [Concomitant]
     Indication: HERPES ZOSTER
     Dosage: UNKNOWN DOSE
     Dates: start: 20130718, end: 20130719

REACTIONS (2)
  - Platelet count decreased [Recovered/Resolved]
  - Herpes zoster [Unknown]
